FAERS Safety Report 19931639 (Version 2)
Quarter: 2021Q4

REPORT INFORMATION
  Report Type: Spontaneous
  Country: US (occurrence: US)
  Receive Date: 20211007
  Receipt Date: 20211019
  Transmission Date: 20220303
  Serious: Yes (Hospitalization)
  Sender: FDA-Public Use
  Company Number: US-TEVA-2021-US-1961088

PATIENT
  Age: 6 Year
  Sex: Male
  Weight: 27 kg

DRUGS (1)
  1. CETIRIZINE [Suspect]
     Active Substance: CETIRIZINE HYDROCHLORIDE
     Indication: Rhinitis allergic
     Dosage: RECEIVED A HEAPING SPOONFUL OF THE CETIRIZINE WHICH WAS EQUATED BETWEEN 15 AND 20ML (15-20MG)
     Route: 048

REACTIONS (12)
  - Anticholinergic syndrome [Recovering/Resolving]
  - Agitation [Recovered/Resolved]
  - Hallucination [Recovered/Resolved]
  - Pupil fixed [Recovering/Resolving]
  - Mydriasis [Recovering/Resolving]
  - Tachycardia [Recovered/Resolved]
  - Hyperthermia [Recovering/Resolving]
  - Flushing [Recovering/Resolving]
  - Mucosal dryness [Recovering/Resolving]
  - Tachypnoea [Recovered/Resolved]
  - Accidental overdose [Unknown]
  - Toxicity to various agents [Unknown]
